FAERS Safety Report 7769945-9 (Version None)
Quarter: 2011Q3

REPORT INFORMATION
  Report Type: 
  Country: None (occurrence: None)
  Receive Date: 20110922
  Receipt Date: 20110914
  Transmission Date: 20111222
  Serious: Yes (Death, Other)
  Sender: FDA-Public Use
  Company Number: US-GLAXOSMITHKLINE-A0944621A

PATIENT
  Age: 65 Year
  Sex: Male

DRUGS (3)
  1. AVANDIA [Suspect]
     Indication: TYPE 2 DIABETES MELLITUS
     Route: 048
     Dates: start: 20010101, end: 20090101
  2. ANTI-HYPERCHOLESTEROLAEMIC [Concomitant]
  3. BLOOD PRESSURE MEDICATION [Concomitant]

REACTIONS (5)
  - LOSS OF CONSCIOUSNESS [None]
  - CHEST PAIN [None]
  - HEADACHE [None]
  - CARDIOMYOPATHY [None]
  - CEREBROVASCULAR ACCIDENT [None]
